FAERS Safety Report 9761685 (Version 2)
Quarter: 2013Q4

REPORT INFORMATION
  Report Type: Spontaneous
  Country: NO (occurrence: NO)
  Receive Date: 20131216
  Receipt Date: 20131226
  Transmission Date: 20140711
  Serious: Yes (Disabling, Other)
  Sender: FDA-Public Use
  Company Number: NO-WATSON-2013-22887

PATIENT
  Sex: Female
  Weight: 43 kg

DRUGS (18)
  1. FENTANYL (UNKNOWN) [Suspect]
     Indication: PRODUCT USED FOR UNKNOWN INDICATION
     Dosage: UNK
     Route: 008
  2. BUPIVACAINE (UNKNOWN) [Suspect]
     Indication: PRODUCT USED FOR UNKNOWN INDICATION
     Dosage: 100 MG, UNKNOWN
     Route: 008
  3. LIDOCAINE AND EPINEPHRINE [Suspect]
     Indication: PRODUCT USED FOR UNKNOWN INDICATION
     Dosage: DOSE WITH 3 ML LIDOCAINE (10 MG/ML) WITH EPINEPHRINE WAS ADMINISTERED FIRST.
     Route: 008
  4. LIDOCAINE AND EPINEPHRINE [Suspect]
     Dosage: A LOADING DOSE OF 6 ML WAS GIVEN AT 8:50 AM AND THEN EPIDURAL INFUSION WITH 7 ML/HOUR.
     Route: 008
  5. LIDOCAINE AND EPINEPHRINE [Suspect]
     Dosage: AN ADDITIONAL BOLUS DOSE OF 3 ML AT 11:35 AM WAS GIVEN.
     Route: 008
  6. NESACAINE [Suspect]
     Indication: PRODUCT USED FOR UNKNOWN INDICATION
     Dosage: 15 ML, SINGLE, 30 MG/ML WAS INJECTED AT 3 PM
     Route: 065
  7. EPINEPHRINE [Suspect]
     Indication: PRODUCT USED FOR UNKNOWN INDICATION
     Dosage: UNK
     Route: 008
  8. ATROPINE [Concomitant]
     Indication: PRODUCT USED FOR UNKNOWN INDICATION
     Dosage: 0.5 MG, UNKNOWN
     Route: 065
  9. GLUCOSE [Concomitant]
     Indication: PRODUCT USED FOR UNKNOWN INDICATION
     Dosage: 1000 ML, UNKNOWN
     Route: 065
  10. PITOCIN                            /00071301/ [Concomitant]
     Indication: PRODUCT USED FOR UNKNOWN INDICATION
     Dosage: 5 IU, UNKNOWN
     Route: 065
  11. PETIDIN [Concomitant]
     Indication: PRODUCT USED FOR UNKNOWN INDICATION
     Dosage: UNK
     Route: 065
  12. SODIUM CITRATE [Concomitant]
     Indication: PRODUCT USED FOR UNKNOWN INDICATION
     Dosage: UNK
     Route: 065
  13. CEPHALOTIN                         /00010901/ [Concomitant]
     Indication: PRODUCT USED FOR UNKNOWN INDICATION
     Dosage: 2 G, UNKNOWN
     Route: 065
  14. PHENYLEPHRINE HYDROCHLORIDE [Concomitant]
     Indication: PRODUCT USED FOR UNKNOWN INDICATION
     Dosage: 0.1 MG, UNKNOWN
     Route: 065
  15. EPHEDRINE [Concomitant]
     Indication: PRODUCT USED FOR UNKNOWN INDICATION
     Dosage: 10 MG, UNKNOWN
     Route: 065
  16. KETOBEMIDONE [Concomitant]
     Indication: PRODUCT USED FOR UNKNOWN INDICATION
     Dosage: UNK
     Route: 065
  17. RINGER ACETAT [Concomitant]
     Indication: PRODUCT USED FOR UNKNOWN INDICATION
     Dosage: 3000 ML, UNKNOWN
     Route: 065
  18. PERFALGAN [Concomitant]
     Indication: PRODUCT USED FOR UNKNOWN INDICATION
     Dosage: 1000 MG, UNKNOWN
     Route: 065

REACTIONS (13)
  - Nervous system disorder [Unknown]
  - Intervertebral disc protrusion [Unknown]
  - Motor dysfunction [Unknown]
  - Hypotension [Unknown]
  - Anaesthetic complication [Unknown]
  - Pelvic pain [Unknown]
  - Sensory loss [Unknown]
  - Headache [Unknown]
  - Meningitis [Unknown]
  - Neck pain [Unknown]
  - Back pain [Unknown]
  - Arthralgia [Unknown]
  - Paraesthesia [Unknown]
